FAERS Safety Report 25277554 (Version 1)
Quarter: 2025Q2

REPORT INFORMATION
  Report Type: Other
  Country: ES (occurrence: ES)
  Receive Date: 20250507
  Receipt Date: 20250507
  Transmission Date: 20250716
  Serious: Yes (Life-Threatening, Hospitalization)
  Sender: STRIDES
  Company Number: None

PATIENT
  Age: 59 Year
  Sex: Female

DRUGS (4)
  1. GABAPENTIN [Interacting]
     Active Substance: GABAPENTIN
     Indication: Radicular pain
     Route: 048
     Dates: start: 202207, end: 20240416
  2. TRAMADOL [Interacting]
     Active Substance: TRAMADOL
     Indication: Accidental overdose
     Route: 048
     Dates: start: 20240416, end: 20240416
  3. FENTANYL [Interacting]
     Active Substance: FENTANYL
     Indication: Intentional overdose
     Route: 062
     Dates: start: 20240416, end: 20240416
  4. RIVOTRIL [Interacting]
     Active Substance: CLONAZEPAM
     Indication: Radicular pain
     Route: 048
     Dates: start: 201201, end: 20240416

REACTIONS (1)
  - Depressed level of consciousness [Recovered/Resolved]

NARRATIVE: CASE EVENT DATE: 20240416
